FAERS Safety Report 10149807 (Version 1)
Quarter: 2014Q2

REPORT INFORMATION
  Report Type: Spontaneous
  Country: IT (occurrence: IT)
  Receive Date: 20140502
  Receipt Date: 20140502
  Transmission Date: 20141212
  Serious: Yes (Other)
  Sender: FDA-Public Use
  Company Number: IT-TEVA-476726ISR

PATIENT
  Age: 74 Year
  Sex: Male
  Weight: 60 kg

DRUGS (6)
  1. LEVOFLOXACIN [Suspect]
     Indication: BRONCHITIS
     Dosage: 500 MG DAILY
     Route: 042
     Dates: start: 20140303, end: 20140305
  2. CEFTRIAXONE MYLAN GENERICS 1 G POLVERE PER SOLUZIONE INIETTABILE [Concomitant]
     Indication: BRONCHITIS
     Dosage: 2 G
     Route: 042
     Dates: start: 20140305, end: 20140309
  3. TRIATEC 5 MG COMPRESSE [Concomitant]
     Indication: HYPERTENSION
     Dosage: 5 MG
     Route: 048
     Dates: start: 20140303, end: 20140309
  4. NORVASC 5 MG COMPRESSE [Concomitant]
     Indication: HYPERTENSION
     Dosage: 5 MG
     Route: 048
     Dates: start: 20140303, end: 20140309
  5. DELTACORTENE 25 MG COMPRESSE [Concomitant]
     Indication: BRONCHITIS
     Dosage: 25 MG
     Route: 048
     Dates: start: 20140305, end: 20140305
  6. KCL RETARD 600 MG COMPRESSE A RILASCIO PROLUNGATO [Concomitant]
     Indication: PRODUCT USED FOR UNKNOWN INDICATION
     Dosage: 600 MG
     Route: 048
     Dates: start: 20140307, end: 20140309

REACTIONS (2)
  - Delusion [Recovered/Resolved]
  - Hallucination, visual [Recovered/Resolved]
